FAERS Safety Report 6114816-7 (Version None)
Quarter: 2009Q1

REPORT INFORMATION
  Report Type: 
  Country: None (occurrence: None)
  Receive Date: 20090311
  Receipt Date: 20080307
  Transmission Date: 20090719
  Serious: Yes (Other)
  Sender: FDA-Public Use
  Company Number: US200803001655

PATIENT
  Age: 83 Year
  Sex: Male

DRUGS (1)
  1. GEMZAR [Suspect]
     Dosage: 1000 MG/M2, OTHER

REACTIONS (1)
  - PULMONARY TOXICITY [None]
